FAERS Safety Report 11946867 (Version 2)
Quarter: 2016Q1

REPORT INFORMATION
  Report Type: Spontaneous
  Country: US (occurrence: US)
  Receive Date: 20160125
  Receipt Date: 20160126
  Transmission Date: 20160526
  Serious: No
  Sender: FDA-Public Use
  Company Number: US-TEVA-627652USA

PATIENT
  Age: 51 Year
  Sex: Male

DRUGS (2)
  1. NUVIGIL [Suspect]
     Active Substance: ARMODAFINIL
     Indication: SLEEP APNOEA SYNDROME
     Dosage: 150 MILLIGRAM DAILY;
     Route: 065
     Dates: start: 20151202
  2. SERTRALINE [Concomitant]
     Active Substance: SERTRALINE HYDROCHLORIDE

REACTIONS (7)
  - Gingival swelling [Recovered/Resolved]
  - Nasopharyngitis [Recovered/Resolved]
  - Gingival pain [Recovered/Resolved]
  - Gingival bleeding [Unknown]
  - Dysgeusia [Recovered/Resolved]
  - Gingival disorder [Recovered/Resolved]
  - Somnolence [Recovered/Resolved]

NARRATIVE: CASE EVENT DATE: 20151202
